FAERS Safety Report 23617436 (Version 4)
Quarter: 2025Q1

REPORT INFORMATION
  Report Type: Spontaneous
  Country: AT (occurrence: AT)
  Receive Date: 20240311
  Receipt Date: 20250210
  Transmission Date: 20250408
  Serious: Yes (Hospitalization, Disabling)
  Sender: AMICUS THERAPEUTICS
  Company Number: AT-AMICUS THERAPEUTICS, INC.-AMI_2974

PATIENT
  Age: 44 Year
  Sex: Male
  Weight: 52.7 kg

DRUGS (2)
  1. POMBILITI [Suspect]
     Active Substance: CIPAGLUCOSIDASE ALFA-ATGA
     Indication: Glycogen storage disease type II
     Dosage: 1050 MILLIGRAM, Q2WK
     Route: 042
  2. OPFOLDA [Suspect]
     Active Substance: MIGLUSTAT
     Indication: Glycogen storage disease type II
     Dosage: 260 MILLIGRAM, Q2WK (1 HOUR BEFORE ADMINISTRATION OF POMBILITI)
     Route: 048

REACTIONS (4)
  - Sputum increased [Recovered/Resolved]
  - Sensation of foreign body [Not Recovered/Not Resolved]
  - Dysphagia [Not Recovered/Not Resolved]
  - Sputum increased [Not Recovered/Not Resolved]

NARRATIVE: CASE EVENT DATE: 20240201
